FAERS Safety Report 8542910-X (Version None)
Quarter: 2012Q3

REPORT INFORMATION
  Report Type: 
  Country: None (occurrence: None)
  Receive Date: 20120716
  Receipt Date: 20120629
  Transmission Date: 20120928
  Serious: Yes (Hospitalization, Other)
  Sender: FDA-Public Use
  Company Number: 2012-000524

PATIENT
  Age: 58 Year
  Sex: Female
  Weight: 68.9 kg

DRUGS (3)
  1. FOSAMAX [Suspect]
     Dosage: DOSAGE / FREQUENCY UNKNOWN, ORAL
     Route: 048
     Dates: start: 20051012
  2. FOSAMAX PLUS D [Suspect]
     Indication: OSTEOPENIA
     Dosage: 70 MG, 1/WEEK, ORAL
     Route: 048
     Dates: start: 20061016
  3. ACTONEL [Suspect]
     Dosage: DOSAGE / FREQUENCY UNKNOWN, ORAL
     Route: 048
     Dates: start: 20051012

REACTIONS (7)
  - PATHOLOGICAL FRACTURE [None]
  - GAIT DISTURBANCE [None]
  - PAIN IN EXTREMITY [None]
  - FALL [None]
  - METASTASES TO BONE [None]
  - FEMUR FRACTURE [None]
  - CONTUSION [None]
